FAERS Safety Report 17555450 (Version 1)
Quarter: 2020Q1

REPORT INFORMATION
  Report Type: Spontaneous
  Country: US (occurrence: US)
  Receive Date: 20200318
  Receipt Date: 20200318
  Transmission Date: 20200409
  Serious: No
  Sender: FDA-Public Use
  Company Number: US-PFIZER INC-2019008381

PATIENT
  Age: 74 Year
  Sex: Female
  Weight: 81.65 kg

DRUGS (15)
  1. LEVOTHYROXINE. [Concomitant]
     Active Substance: LEVOTHYROXINE
     Dosage: 50 UG, UNK (75MCG, FOR 2 DAYS AND 50MCG THE OTHER 5 DAYS)
  2. LEVOTHYROXINE. [Concomitant]
     Active Substance: LEVOTHYROXINE
     Indication: HYPOTHYROIDISM
     Dosage: 75 UG, UNK (75MCG, FOR 2 DAYS AND 50MCG THE OTHER 5 DAYS)
  3. CYMBALTA [Concomitant]
     Active Substance: DULOXETINE HYDROCHLORIDE
     Indication: DEPRESSION
     Dosage: 60 MG, 1X/DAY (60MG AT NIGHT)
  4. TYLENOL DC [Concomitant]
     Active Substance: ACETAMINOPHEN\CAFFEINE
     Indication: PAIN
     Dosage: 1300 MG, 2X/DAY (1300 MG, IN THE AM AND PM)
  5. XELJANZ XR [Suspect]
     Active Substance: TOFACITINIB CITRATE
     Indication: RHEUMATOID ARTHRITIS
     Dosage: 11 MG, 1X/DAY (ONCE A DAY IN THE MORNING)
     Dates: start: 201210
  6. OMEPRAZOLE. [Concomitant]
     Active Substance: OMEPRAZOLE
     Indication: GASTRIC ULCER
     Dosage: 20 MG, 1X/DAY (20MG, ONCE IN THE MORNING)
     Dates: start: 2011
  7. GABAPENTIN. [Concomitant]
     Active Substance: GABAPENTIN
     Indication: RESTLESS LEGS SYNDROME
     Dosage: 1200 MG, 3X/DAY (600MG, 2 IN THE MORNING, 2 IN THE AFTERNOON, AND 2 IN THE EVENING)
  8. ACYCLOVIR [ACICLOVIR] [Concomitant]
     Active Substance: ACYCLOVIR
     Indication: HERPES VIRUS INFECTION
     Dosage: 400 MG, 1X/DAY
  9. TRAZODONE [Concomitant]
     Active Substance: TRAZODONE HYDROCHLORIDE
     Indication: SLEEP DISORDER
     Dosage: 100 MG, 1X/DAY (100 MG AT NIGHT)
  10. ROBAXIN [Concomitant]
     Active Substance: METHOCARBAMOL
     Indication: MUSCLE SPASMS
     Dosage: 750 MG, AS NEEDED
  11. ENALAPRIL [Concomitant]
     Active Substance: ENALAPRIL
     Indication: HYPERTENSION
     Dosage: 10 MG, 2X/DAY (10 MG, IN AM AND PM)
  12. AMLODINE [AMLODIPINE] [Concomitant]
     Indication: HYPERTENSION
     Dosage: 5 MG, 1X/DAY (5MG ONE AT NIGHT)
  13. LOVASTATIN. [Concomitant]
     Active Substance: LOVASTATIN
     Indication: HYPERCHOLESTEROLAEMIA
     Dosage: 20 MG, 1X/DAY (ONE AT NIGHT)
  14. DICLOFENAC SODIUM. [Concomitant]
     Active Substance: DICLOFENAC SODIUM
     Indication: PAIN
     Dosage: 1 G, AS NEEDED (1 GM, AS NEEDED UP TO 3 TIMES A DAY)
  15. TYLENOL DC [Concomitant]
     Active Substance: ACETAMINOPHEN\CAFFEINE
     Indication: ARTHRITIS

REACTIONS (4)
  - Malaise [Unknown]
  - Dyspnoea [Unknown]
  - White blood cell count decreased [Unknown]
  - Bronchitis [Recovering/Resolving]

NARRATIVE: CASE EVENT DATE: 20200220
